FAERS Safety Report 7031988-0 (Version None)
Quarter: 2010Q4

REPORT INFORMATION
  Report Type: 
  Country: None (occurrence: None)
  Receive Date: 20101007
  Receipt Date: 20100915
  Transmission Date: 20110411
  Serious: Yes (Death, Other)
  Sender: FDA-Public Use
  Company Number: CA-ELI_LILLY_AND_COMPANY-CA201010000471

PATIENT
  Sex: Male

DRUGS (4)
  1. ZYPREXA [Suspect]
     Indication: SCHIZOPHRENIA, PARANOID TYPE
     Dosage: 15 MG, UNKNOWN
     Route: 065
  2. RISPERDAL CONSTA [Concomitant]
     Dosage: 37.5 MG, UNKNOWN
     Route: 030
     Dates: start: 20081119
  3. RISPERDAL CONSTA [Concomitant]
     Dosage: 50 MG, UNKNOWN
     Route: 030
     Dates: start: 20090127
  4. KEMADRIN [Concomitant]
     Dosage: 5 MG, UNKNOWN
     Route: 065

REACTIONS (5)
  - DELIRIUM [None]
  - INCREASED APPETITE [None]
  - PULMONARY EMBOLISM [None]
  - SPEECH DISORDER [None]
  - WEIGHT INCREASED [None]
